FAERS Safety Report 20716935 (Version 1)
Quarter: 2022Q2

REPORT INFORMATION
  Report Type: Spontaneous
  Country: NO (occurrence: NO)
  Receive Date: 20220416
  Receipt Date: 20220416
  Transmission Date: 20220720
  Serious: Yes (Hospitalization)
  Sender: FDA-Public Use
  Company Number: NO-CURRAX PHARMACEUTICALS LLC-NO-2022CUR021271

PATIENT

DRUGS (3)
  1. BUPROPION HYDROCHLORIDE\NALTREXONE HYDROCHLORIDE [Suspect]
     Active Substance: BUPROPION HYDROCHLORIDE\NALTREXONE HYDROCHLORIDE
     Indication: Overweight
     Dosage: STRENGTH 8/90 MG, UNKNOWN DOSE
     Route: 048
     Dates: start: 20211221
  2. BUPROPION HYDROCHLORIDE\NALTREXONE HYDROCHLORIDE [Suspect]
     Active Substance: BUPROPION HYDROCHLORIDE\NALTREXONE HYDROCHLORIDE
     Dosage: 2 DOSAGE FORM, Q12H
     Route: 048
     Dates: start: 202201, end: 20220218
  3. ATACAND [Concomitant]
     Active Substance: CANDESARTAN CILEXETIL
     Indication: Hypertension
     Dosage: 8 MG IN THE MORNING.
     Route: 048
     Dates: start: 202103

REACTIONS (2)
  - Manic symptom [Recovering/Resolving]
  - Mania [Recovering/Resolving]

NARRATIVE: CASE EVENT DATE: 20211201
